FAERS Safety Report 5233653-9 (Version None)
Quarter: 2007Q1

REPORT INFORMATION
  Report Type: 
  Country: None (occurrence: None)
  Receive Date: 20070208
  Receipt Date: 20070131
  Transmission Date: 20070707
  Serious: Yes (Hospitalization)
  Sender: FDA-Public Use
  Company Number: 2007AP00524

PATIENT
  Age: 1694 Day
  Sex: Female
  Weight: 17.9 kg

DRUGS (12)
  1. PULMICORT RESPULES [Suspect]
     Indication: ASTHMA
     Route: 055
     Dates: start: 20061222, end: 20061222
  2. CLARITHROMYCIN [Concomitant]
     Indication: BRONCHITIS
     Route: 048
     Dates: start: 20061214, end: 20061222
  3. HOKUNALIN: TAPE [Concomitant]
     Indication: ASTHMA
     Dates: start: 20061214, end: 20061229
  4. ONON DRYSURUP [Concomitant]
     Indication: ASTHMA
     Route: 048
     Dates: start: 20061214
  5. INTAL [Concomitant]
     Indication: ASTHMA
     Route: 055
     Dates: start: 20061222, end: 20061229
  6. VENETLIN [Concomitant]
     Indication: ASTHMA
     Route: 055
     Dates: start: 20061222, end: 20061222
  7. VENETLIN [Concomitant]
     Route: 055
     Dates: start: 20061222, end: 20061222
  8. ALEVAIRE [Concomitant]
     Indication: ASTHMA
     Route: 055
     Dates: start: 20061222, end: 20061222
  9. SOLITA-T NO.3 [Concomitant]
     Indication: BRONCHITIS
     Route: 041
     Dates: start: 20061222, end: 20061222
  10. ROCEPHIN [Concomitant]
     Indication: BRONCHITIS
     Route: 041
     Dates: start: 20061222, end: 20061222
  11. SEISHOKU [Concomitant]
     Indication: BRONCHITIS
     Route: 041
     Dates: start: 20061222, end: 20061222
  12. MEPTIN [Concomitant]
     Indication: ASTHMA
     Route: 055
     Dates: start: 20061222, end: 20061229

REACTIONS (1)
  - ASTHMA [None]
